FAERS Safety Report 10043635 (Version 3)
Quarter: 2014Q2

REPORT INFORMATION
  Report Type: Spontaneous
  Country: US (occurrence: US)
  Receive Date: 20140328
  Receipt Date: 20140416
  Transmission Date: 20141212
  Serious: Yes (Other)
  Sender: FDA-Public Use
  Company Number: US-JNJFOC-20140313527

PATIENT
  Age: 57 Year
  Sex: Female

DRUGS (4)
  1. XARELTO [Suspect]
     Indication: PULMONARY THROMBOSIS
     Route: 048
     Dates: start: 20140319
  2. XARELTO [Suspect]
     Indication: PULMONARY THROMBOSIS
     Route: 048
     Dates: start: 201402, end: 20140318
  3. NUVIGIL [Concomitant]
     Indication: SLEEP APNOEA SYNDROME
     Route: 065
  4. NUVIGIL [Concomitant]
     Indication: MULTIPLE SCLEROSIS
     Route: 065

REACTIONS (15)
  - Dyspnoea [Not Recovered/Not Resolved]
  - Muscle spasms [Not Recovered/Not Resolved]
  - Vomiting [Recovered/Resolved]
  - Feeling abnormal [Not Recovered/Not Resolved]
  - Gastritis [Not Recovered/Not Resolved]
  - Nausea [Not Recovered/Not Resolved]
  - Burning sensation [Not Recovered/Not Resolved]
  - Pain in extremity [Not Recovered/Not Resolved]
  - Asthenia [Not Recovered/Not Resolved]
  - Diarrhoea [Unknown]
  - Arthritis [Not Recovered/Not Resolved]
  - Toothache [Unknown]
  - Feeling cold [Not Recovered/Not Resolved]
  - Hyperhidrosis [Not Recovered/Not Resolved]
  - Feeling abnormal [Recovered/Resolved]
